FAERS Safety Report 7437388-3 (Version None)
Quarter: 2011Q2

REPORT INFORMATION
  Report Type: 
  Country: None (occurrence: None)
  Receive Date: 20110426
  Receipt Date: 20110420
  Transmission Date: 20111010
  Serious: Yes (Life-Threatening, Hospitalization, Other)
  Sender: FDA-Public Use
  Company Number: JP-CELGENEUS-087-21880-11031931

PATIENT
  Sex: Female

DRUGS (6)
  1. LASIX [Concomitant]
     Dosage: 10 MILLIGRAM
     Route: 048
     Dates: start: 20110210
  2. ASPARA-CA [Concomitant]
     Dosage: 600 MILLIGRAM
     Route: 048
     Dates: start: 20110210
  3. RED BLOOD CELLS [Concomitant]
     Dosage: 2 UNITS
     Route: 041
     Dates: start: 20110218, end: 20110218
  4. DEXAMETHASONE [Concomitant]
     Indication: MULTIPLE MYELOMA
     Dosage: 40 MILLIGRAM
     Route: 048
     Dates: start: 20110210, end: 20110303
  5. REVLIMID [Suspect]
     Indication: MULTIPLE MYELOMA
     Dosage: 5 MILLIGRAM
     Route: 048
     Dates: start: 20110209, end: 20110220
  6. LIPITOR [Concomitant]
     Dosage: 10 MILLIGRAM
     Route: 048
     Dates: start: 20110210

REACTIONS (4)
  - CARDIAC FAILURE [None]
  - THROMBOCYTOPENIA [None]
  - NEUTROPENIA [None]
  - LEUKAEMIA [None]
